FAERS Safety Report 14911112 (Version 2)
Quarter: 2018Q2

REPORT INFORMATION
  Report Type: Report from Study
  Country: AT (occurrence: AT)
  Receive Date: 20180518
  Receipt Date: 20180518
  Transmission Date: 20180711
  Serious: Yes (Hospitalization)
  Sender: FDA-Public Use
  Company Number: AT-ROCHE-2115914

PATIENT
  Age: 67 Year
  Sex: Male

DRUGS (6)
  1. PARACETAMOL [Concomitant]
     Active Substance: ACETAMINOPHEN
     Route: 042
     Dates: start: 20180504, end: 20180504
  2. SEDACORON [Concomitant]
     Active Substance: AMIODARONE HYDROCHLORIDE
     Route: 065
     Dates: start: 20180506, end: 20180506
  3. NOVALGIN (AUSTRIA) [Concomitant]
     Route: 042
     Dates: start: 20180504, end: 20180504
  4. OBINUTUZUMAB. [Suspect]
     Active Substance: OBINUTUZUMAB
     Indication: CHRONIC LYMPHOCYTIC LEUKAEMIA
     Dosage: LAST DOSE AT 100 MG PRIOR TO SAE ON 24/APR/2018. SUBSEQUENT DOSE ON: 02/MAY/2018?LAST DOSE 1000 MG O
     Route: 042
     Dates: start: 20180424
  5. NOVALGIN (AUSTRIA) [Concomitant]
     Dosage: 20 GH
     Route: 048
     Dates: start: 20180504, end: 20180504
  6. NOVALGIN (AUSTRIA) [Concomitant]
     Route: 042
     Dates: start: 20180505, end: 20180505

REACTIONS (6)
  - Atrial fibrillation [Recovered/Resolved]
  - Tachycardia [Recovering/Resolving]
  - Liver disorder [Recovered/Resolved]
  - Thrombocytopenia [Recovered/Resolved]
  - Myocardial necrosis marker increased [Recovered/Resolved]
  - Pyrexia [Recovered/Resolved]

NARRATIVE: CASE EVENT DATE: 20180425
